FAERS Safety Report 5570958-6 (Version None)
Quarter: 2007Q4

REPORT INFORMATION
  Report Type: 
  Country: None (occurrence: None)
  Receive Date: 20071221
  Receipt Date: 20071221
  Transmission Date: 20080405
  Serious: Yes (Death)
  Sender: FDA-Public Use
  Company Number: GB-JNJFOC-20070902777

PATIENT
  Sex: Male
  Weight: 69 kg

DRUGS (3)
  1. RISPERDAL CONSTA [Suspect]
     Indication: PSYCHOTIC DISORDER
     Route: 030
  2. TRIHEXYPHENIDYL HCL [Concomitant]
     Route: 048
  3. DIAZEPAM [Concomitant]
     Route: 065

REACTIONS (1)
  - PNEUMONIA [None]
